FAERS Safety Report 6098061-X (Version None)
Quarter: 2009Q1

REPORT INFORMATION
  Report Type: 
  Country: None (occurrence: None)
  Receive Date: 20090227
  Receipt Date: 20090224
  Transmission Date: 20090719
  Serious: Yes (Other)
  Sender: FDA-Public Use
  Company Number: JP-ASTRAZENECA-2008AP09892

PATIENT
  Age: 63 Year
  Sex: Male
  Weight: 49 kg

DRUGS (13)
  1. DIPRIVAN [Suspect]
     Indication: SEDATION
     Dosage: TOTAL 200 MG
     Route: 042
     Dates: start: 20080624, end: 20080624
  2. GASCON [Concomitant]
     Indication: ENDOSCOPY UPPER GASTROINTESTINAL TRACT
     Route: 048
     Dates: start: 20080624, end: 20080624
  3. PRONASE [Concomitant]
     Indication: ENDOSCOPY UPPER GASTROINTESTINAL TRACT
     Route: 048
     Dates: start: 20080624, end: 20080624
  4. DECADRON [Concomitant]
     Indication: SHOCK
     Route: 042
     Dates: start: 20080624, end: 20080624
  5. VEEN-D [Concomitant]
     Route: 041
     Dates: start: 20080624, end: 20080624
  6. LACTEC [Concomitant]
     Route: 041
     Dates: start: 20080624, end: 20080624
  7. ADONA [Concomitant]
     Route: 041
     Dates: start: 20080624, end: 20080624
  8. TRANSAMIN S [Concomitant]
     Route: 041
     Dates: start: 20080624, end: 20080624
  9. SOLDEM 3A [Concomitant]
     Route: 041
     Dates: start: 20080624, end: 20080626
  10. SEISHOKU [Concomitant]
     Route: 040
     Dates: start: 20080624, end: 20080625
  11. TAKEPRON [Concomitant]
     Route: 040
     Dates: start: 20080624, end: 20080625
  12. UNASYN [Concomitant]
     Route: 041
     Dates: start: 20080624, end: 20080625
  13. THYRADIN S [Concomitant]
     Indication: HYPOTHYROIDISM
     Route: 048
     Dates: end: 20081017

REACTIONS (1)
  - RESPIRATORY FAILURE [None]
